FAERS Safety Report 10503720 (Version 2)
Quarter: 2014Q4

REPORT INFORMATION
  Report Type: Spontaneous
  Country: US (occurrence: None)
  Receive Date: 20141006
  Receipt Date: 20141027
  Transmission Date: 20150528
  Serious: Yes (Other)
  Sender: FDA-Public Use
  Company Number: 2014VID00047

PATIENT
  Age: 5 Year
  Sex: Male
  Weight: 17.9 kg

DRUGS (3)
  1. ACTIMMUNE [Suspect]
     Active Substance: INTERFERON GAMMA-1B
     Indication: CHRONIC GRANULOMATOUS DISEASE
     Dosage: 3X/WEEK
     Route: 058
     Dates: start: 20140818, end: 20140915
  2. ITRACONAZOLE. [Concomitant]
     Active Substance: ITRACONAZOLE
  3. CEFDINIR. [Concomitant]
     Active Substance: CEFDINIR

REACTIONS (6)
  - Lymphadenopathy [None]
  - Serratia infection [None]
  - Alanine aminotransferase increased [None]
  - Chronic hepatitis [None]
  - Aspartate aminotransferase increased [None]
  - Lymphadenitis [None]

NARRATIVE: CASE EVENT DATE: 20140915
